FAERS Safety Report 5290283-0 (Version None)
Quarter: 2007Q2

REPORT INFORMATION
  Report Type: 
  Country: None (occurrence: None)
  Receive Date: 20070406
  Receipt Date: 20070330
  Transmission Date: 20071010
  Serious: Yes (Life-Threatening)
  Sender: FDA-Public Use
  Company Number: JP-MERCK-0704USA00219

PATIENT
  Age: 58 Year
  Sex: Male

DRUGS (10)
  1. PEPCID RPD [Suspect]
     Route: 048
     Dates: start: 20070327, end: 20070329
  2. PEPCID [Suspect]
     Route: 042
     Dates: start: 20070320
  3. CEFAZOLIN SODIUM [Concomitant]
     Route: 042
     Dates: start: 20070321, end: 20070324
  4. UNASYN [Concomitant]
     Route: 042
     Dates: start: 20070324, end: 20070329
  5. GLYCEOL [Concomitant]
     Route: 042
     Dates: start: 20070321
  6. [THERAPY UNSPECIFIED] [Concomitant]
     Route: 042
     Dates: start: 20070321
  7. CONIEL [Concomitant]
     Route: 048
  8. [THERAPY UNSPECIFIED] [Concomitant]
     Route: 041
  9. HERBESSER [Concomitant]
     Route: 042
     Dates: start: 20070321, end: 20070322
  10. TAGAMET [Concomitant]
     Route: 042
     Dates: start: 20070321, end: 20070326

REACTIONS (1)
  - RHABDOMYOLYSIS [None]
